FAERS Safety Report 9886931 (Version 3)
Quarter: 2014Q1

REPORT INFORMATION
  Report Type: Report from Study
  Country: IT (occurrence: IT)
  Receive Date: 20140211
  Receipt Date: 20140331
  Transmission Date: 20141002
  Serious: Yes (Hospitalization)
  Sender: FDA-Public Use
  Company Number: IT-AMGEN-ITACT2014008639

PATIENT
  Age: 63 Year
  Sex: Male

DRUGS (5)
  1. PANITUMUMAB [Suspect]
     Indication: RECTAL CANCER
     Dosage: UNK
     Route: 065
     Dates: start: 20140121
  2. OXALIPLATIN [Concomitant]
     Indication: RECTAL CANCER
     Dosage: 141.95 UNK, UNK
     Route: 065
     Dates: start: 20140121, end: 20140122
  3. 5-FLUOROURACIL                     /00098801/ [Concomitant]
     Indication: RECTAL CANCER
     Dosage: 1002 UNK, UNK
     Route: 042
     Dates: start: 20140121, end: 20140122
  4. 5-FLUOROURACIL                     /00098801/ [Concomitant]
     Dosage: 668 UNK, UNK
     Route: 040
     Dates: start: 20140121
  5. LEVOFOLINATE [Concomitant]
     Indication: RECTAL CANCER
     Dosage: 167 UNK, UNK
     Dates: start: 20140121, end: 20140122

REACTIONS (2)
  - Febrile neutropenia [Recovered/Resolved]
  - Urosepsis [Recovered/Resolved]
